FAERS Safety Report 9750026 (Version 1)
Quarter: 2013Q4

REPORT INFORMATION
  Report Type: Spontaneous
  Country: DE (occurrence: DE)
  Receive Date: 20131212
  Receipt Date: 20131212
  Transmission Date: 20140711
  Serious: No
  Sender: FDA-Public Use
  Company Number: DE-GILEAD-DE-CVT-090628

PATIENT
  Age: 55 Year
  Sex: Female

DRUGS (4)
  1. RANEXA [Suspect]
     Indication: ANGINA PECTORIS
     Route: 048
     Dates: start: 20090805, end: 20090808
  2. NEBIVOLOL [Concomitant]
     Route: 048
     Dates: start: 2006
  3. MOLSIDOMIN [Concomitant]
     Route: 048
     Dates: start: 2006
  4. ATACAND PLUS [Concomitant]
     Route: 048
     Dates: start: 2006

REACTIONS (1)
  - Vomiting [Recovered/Resolved]
